FAERS Safety Report 6070878-7 (Version None)
Quarter: 2009Q1

REPORT INFORMATION
  Report Type: 
  Country: None (occurrence: None)
  Receive Date: 20090209
  Receipt Date: 20090105
  Transmission Date: 20090719
  Serious: Yes (Other)
  Sender: FDA-Public Use
  Company Number: A0755015A

PATIENT
  Age: 49 Year
  Sex: Female

DRUGS (6)
  1. PAXIL [Suspect]
     Indication: OBSESSIVE-COMPULSIVE DISORDER
     Route: 048
  2. KLONOPIN [Concomitant]
  3. LITHIUM CARBONATE [Concomitant]
  4. ESKALITH [Concomitant]
  5. VALPROIC ACID [Concomitant]
  6. DEPAKOTE [Concomitant]

REACTIONS (2)
  - DRUG ADMINISTRATION ERROR [None]
  - MANIA [None]
